FAERS Safety Report 23699081 (Version 1)
Quarter: 2024Q2

REPORT INFORMATION
  Report Type: Spontaneous
  Country: US (occurrence: US)
  Receive Date: 20240402
  Receipt Date: 20240402
  Transmission Date: 20240716
  Serious: Yes (Hospitalization, Disabling)
  Sender: FDA-Public Use
  Company Number: US-MIRATI-MT2024PM06321

PATIENT

DRUGS (1)
  1. KRAZATI [Suspect]
     Active Substance: ADAGRASIB
     Indication: Lung neoplasm malignant
     Dosage: 600 MG BID (200 MG THREE TABLETS TWICE DAILY)
     Route: 048
     Dates: start: 202312, end: 20240318

REACTIONS (1)
  - Pneumonitis [Recovering/Resolving]
